FAERS Safety Report 11272220 (Version 1)
Quarter: 2015Q2

REPORT INFORMATION
  Report Type: Spontaneous
  Country: US (occurrence: None)
  Receive Date: 20150625
  Receipt Date: 20150625
  Transmission Date: 20150821
  Serious: No
  Sender: FDA-Public Use
  Company Number: A-US2014-106092

PATIENT
  Age: 58 Year
  Sex: Female

DRUGS (3)
  1. REVATIO (SILDENAFIL CITRATE [Concomitant]
  2. OPSUMIT [Suspect]
     Active Substance: MACITENTAN
     Indication: PULMONARY ARTERIAL HYPERTENSION
     Route: 048
     Dates: start: 20140203
  3. TYVASO [Suspect]
     Active Substance: TREPROSTINIL
     Indication: PRODUCT USED FOR UNKNOWN INDICATION

REACTIONS (11)
  - Restlessness [None]
  - Nausea [None]
  - Anxiety [None]
  - Cough [None]
  - Insomnia [None]
  - Diarrhoea [None]
  - Chest discomfort [None]
  - Arthritis [None]
  - Abdominal pain upper [None]
  - Headache [None]
  - Hypotension [None]
